FAERS Safety Report 9804507 (Version 1)
Quarter: 2014Q1

REPORT INFORMATION
  Report Type: Spontaneous
  Country: IT (occurrence: IT)
  Receive Date: 20140108
  Receipt Date: 20140108
  Transmission Date: 20141002
  Serious: Yes (Other)
  Sender: FDA-Public Use
  Company Number: IT-GLAXOSMITHKLINE-B0958119A

PATIENT
  Age: 38 Year
  Sex: Female

DRUGS (3)
  1. DUAC [Suspect]
     Indication: ACNE PUSTULAR
     Route: 061
     Dates: start: 20120917, end: 20120924
  2. GENTALYN [Suspect]
     Indication: ACNE PUSTULAR
     Route: 061
     Dates: start: 20120917, end: 20120924
  3. SPIRAMYCINE [Suspect]
     Indication: ACNE PUSTULAR
     Route: 048
     Dates: start: 20120917, end: 20120924

REACTIONS (2)
  - Pruritus generalised [Not Recovered/Not Resolved]
  - Hyperaemia [Unknown]
